FAERS Safety Report 26042990 (Version 1)
Quarter: 2025Q4

REPORT INFORMATION
  Report Type: Spontaneous
  Country: US (occurrence: US)
  Receive Date: 20251113
  Receipt Date: 20251113
  Transmission Date: 20260118
  Serious: No
  Sender: ANI
  Company Number: US-ANIPHARMA-2025-US-046256

PATIENT
  Sex: Female

DRUGS (1)
  1. CORTICOTROPIN [Suspect]
     Active Substance: CORTICOTROPIN
     Indication: Eye inflammation
     Dosage: 80 UNITS 2 XWEEKLY
     Dates: start: 20250925, end: 20251009

REACTIONS (5)
  - Swelling face [Unknown]
  - Nausea [Unknown]
  - Migraine [Unknown]
  - Intermenstrual bleeding [Unknown]
  - Eye swelling [Unknown]
